FAERS Safety Report 4599298-9 (Version None)
Quarter: 2005Q1

REPORT INFORMATION
  Report Type: 
  Country: None (occurrence: None)
  Receive Date: 20050303
  Receipt Date: 20050303
  Transmission Date: 20050727
  Serious: Yes (Hospitalization)
  Sender: FDA-Public Use
  Company Number: None

PATIENT
  Age: 58 Year
  Sex: Male
  Weight: 103 kg

DRUGS (14)
  1. RITUXIMAB [Suspect]
     Indication: GRAFT VERSUS HOST DISEASE
     Dosage: 375 MG/M2  1/WEEK X 4 INTRAVENOUS
     Route: 042
     Dates: start: 20040419, end: 20040510
  2. ACYCLOVIR [Concomitant]
  3. AMBIEN [Concomitant]
  4. BACTRIM [Concomitant]
  5. K-DUR 10 [Concomitant]
  6. LASIX [Concomitant]
  7. MAGNESIUM OXIDE [Concomitant]
  8. NEURONTIN [Concomitant]
  9. NIFEDIPINE [Concomitant]
  10. OXYCODONE HCL [Concomitant]
  11. OXYCONTIN [Concomitant]
  12. PRILOSEC [Concomitant]
  13. ZESTRIL [Concomitant]
  14. ZOLOFT [Concomitant]

REACTIONS (4)
  - CELLULITIS [None]
  - CONDITION AGGRAVATED [None]
  - GRAFT VERSUS HOST DISEASE [None]
  - HYPOTENSION [None]
